FAERS Safety Report 7137099-8 (Version None)
Quarter: 2010Q4

REPORT INFORMATION
  Report Type: 
  Country: None (occurrence: None)
  Receive Date: 20101119
  Receipt Date: 20100221
  Transmission Date: 20110411
  Serious: Yes (Death)
  Sender: FDA-Public Use
  Company Number: DSA_44228_2010

PATIENT
  Sex: Male
  Weight: 79.3795 kg

DRUGS (15)
  1. XENAZINE [Suspect]
     Indication: HUNTINGTON'S DISEASE
     Dosage: (12.5 MG TID ORAL)
     Route: 048
     Dates: start: 20091225, end: 20100125
  2. CYMBALTA [Concomitant]
  3. PRAVASTATIN [Concomitant]
  4. NASONEX [Concomitant]
  5. QUINAPRIL [Concomitant]
  6. DILTIAZEM CD [Concomitant]
  7. HYDROCHLOROTHIAZIDE [Concomitant]
  8. MELATONIN [Concomitant]
  9. ZANTAC [Concomitant]
  10. VITAMIN B COMPLEX /00003501/ [Concomitant]
  11. COENZYME Q10 [Concomitant]
  12. FISH OIL [Concomitant]
  13. CHONDROITIN W/GLUCOSAMINE /02118501/ [Concomitant]
  14. BENEFIBER /01648102/ [Concomitant]
  15. CITRACAL [Concomitant]

REACTIONS (1)
  - DEATH [None]
